FAERS Safety Report 7788212-0 (Version None)
Quarter: 2011Q3

REPORT INFORMATION
  Report Type: 
  Country: None (occurrence: None)
  Receive Date: 20110930
  Receipt Date: 20110921
  Transmission Date: 20111222
  Serious: Yes (Hospitalization, Other)
  Sender: FDA-Public Use
  Company Number: US-JNJFOC-20110909650

PATIENT
  Sex: Male
  Weight: 88.45 kg

DRUGS (4)
  1. OXYCODONE HCL [Suspect]
     Indication: BACK PAIN
     Route: 048
     Dates: start: 20070101
  2. DURAGESIC-100 [Suspect]
     Indication: BACK PAIN
     Route: 062
     Dates: start: 20030101, end: 20070101
  3. METHADONE HCL [Suspect]
     Indication: BACK PAIN
     Dosage: 160MG/TABLET/10 MG
     Route: 048
     Dates: start: 20070101
  4. COUMADIN [Concomitant]
     Indication: PULMONARY EMBOLISM
     Route: 065
     Dates: start: 19770101

REACTIONS (6)
  - PULMONARY EMBOLISM [None]
  - MENTAL IMPAIRMENT [None]
  - INSOMNIA [None]
  - BODY HEIGHT DECREASED [None]
  - SURGERY [None]
  - HYPOAESTHESIA [None]
